FAERS Safety Report 16762835 (Version 3)
Quarter: 2019Q3

REPORT INFORMATION
  Report Type: Spontaneous
  Country: JP (occurrence: JP)
  Receive Date: 20190901
  Receipt Date: 20190924
  Transmission Date: 20191005
  Serious: Yes (Death, Other)
  Sender: FDA-Public Use
  Company Number: JP-009507513-1908JPN002560J

PATIENT
  Age: 83 Year
  Sex: Female

DRUGS (4)
  1. ROZEREM [Concomitant]
     Active Substance: RAMELTEON
     Indication: DELIRIUM
     Dosage: UNK
     Route: 065
  2. ATROPINE. [Concomitant]
     Active Substance: ATROPINE
     Indication: BRADYCARDIA
     Dosage: UNK
     Route: 065
  3. BELSOMRA [Suspect]
     Active Substance: SUVOREXANT
     Indication: DELIRIUM
     Dosage: UNK
     Route: 048
  4. MORPHINE HYDROCHLORIDE HYDRATE [Concomitant]
     Active Substance: MORPHINE HYDROCHLORIDE
     Indication: CHEST PAIN
     Dosage: UNK
     Route: 065

REACTIONS (12)
  - Blood pressure decreased [Fatal]
  - Off label use [Unknown]
  - Anaemia [Unknown]
  - Delirium [Fatal]
  - Acidosis [Unknown]
  - Ventricular tachycardia [Unknown]
  - Respiratory disorder [Fatal]
  - Inflammation [Unknown]
  - Hepatic congestion [Unknown]
  - Prerenal failure [Unknown]
  - Hypoglycaemia [Unknown]
  - Constipation [Unknown]
